FAERS Safety Report 10167298 (Version 1)
Quarter: 2014Q2

REPORT INFORMATION
  Report Type: Spontaneous
  Country: US (occurrence: US)
  Receive Date: 20140512
  Receipt Date: 20140512
  Transmission Date: 20141212
  Serious: No
  Sender: FDA-Public Use
  Company Number: US-009507513-1405USA004899

PATIENT
  Age: 57 Year
  Sex: Female

DRUGS (5)
  1. PROVENTIL [Suspect]
     Indication: ASTHMA
     Dosage: 1 INHALATION EVERY 4-6 HOURS AS NEEDED
     Route: 055
     Dates: start: 2012
  2. CLINDAMYCIN [Suspect]
     Dosage: UNK
     Dates: start: 20140507
  3. WARFARIN [Concomitant]
  4. ZOCOR [Concomitant]
  5. METOPROLOL [Concomitant]

REACTIONS (2)
  - Dysgeusia [Recovered/Resolved]
  - Dysgeusia [Recovered/Resolved]
